FAERS Safety Report 25377355 (Version 8)
Quarter: 2025Q4

REPORT INFORMATION
  Report Type: Report from Study
  Country: US (occurrence: None)
  Receive Date: 20250530
  Receipt Date: 20251205
  Transmission Date: 20260117
  Serious: Yes (Hospitalization, Other)
  Sender: UCB
  Company Number: US-UCBSA-2025015720

PATIENT
  Age: 20 Year

DRUGS (33)
  1. FENFLURAMINE [Suspect]
     Active Substance: FENFLURAMINE
     Indication: Lennox-Gastaut syndrome
     Dosage: 5.9 MILLILITER, 2X/DAY (BID)
  2. FENFLURAMINE [Suspect]
     Active Substance: FENFLURAMINE
     Dosage: UNK
  3. FENFLURAMINE [Suspect]
     Active Substance: FENFLURAMINE
     Dosage: 5.9 MILLILITER, 2X/DAY (BID)
  4. FENFLURAMINE [Suspect]
     Active Substance: FENFLURAMINE
     Dosage: 5.9 MILLILITER, 2X/DAY (BID)
  5. FENFLURAMINE [Suspect]
     Active Substance: FENFLURAMINE
     Dosage: 25.96 MG/DAY
  6. FENFLURAMINE [Suspect]
     Active Substance: FENFLURAMINE
     Dosage: 5.9 MILLILITER, 2X/DAY (BID)
  7. FENFLURAMINE [Suspect]
     Active Substance: FENFLURAMINE
     Dosage: 5.9 MILLILITER, 2X/DAY (BID)
  8. FENFLURAMINE [Suspect]
     Active Substance: FENFLURAMINE
     Dosage: 5.9 MILLILITER, 2X/DAY (BID)
  9. FENFLURAMINE [Suspect]
     Active Substance: FENFLURAMINE
     Dosage: 1 MILLIGRAM, 2X/DAY (BID)
  10. FENFLURAMINE [Suspect]
     Active Substance: FENFLURAMINE
     Dosage: 11.8 MILLILITER PER DAY
  11. KEPPRA [Suspect]
     Active Substance: LEVETIRACETAM
     Indication: Product used for unknown indication
     Dosage: 20 MILLILITER, 2X/DAY (BID) (4000 MG DAILY)
  12. VALTOCO [Concomitant]
     Active Substance: DIAZEPAM
     Indication: Seizure
     Dosage: 20 MG/2 SPRAY (10MG/0.1ML X2), SPRAY,NON-AEROSOL, NASAL 1 SPRAY IN NOSTRIL AS NEEDED FOR SEIZURE MORE THAN 3 MINUTES; MAY REPEAT IN 4 HRS AS NEEDED; NO MORE THAN 2 DOSES PER TREATMENT; NO MORE THAN 5 DOSES IN 30 DAYS
  13. KLONOPIN [Concomitant]
     Active Substance: CLONAZEPAM
     Indication: Seizure
     Dosage: 0.5 MG, TABLET, ORAL TAKE 1 ORAL TABLET THREE TIMES A DAY AS NEEDED
  14. XCOPRI [Concomitant]
     Active Substance: CENOBAMATE
     Indication: Seizure
     Dosage: 100 MILLIGRAM, ONCE DAILY (QD)
  15. CLOBAZAM [Concomitant]
     Active Substance: CLOBAZAM
     Indication: Seizure
     Dosage: 2.5 MG/ML, SUSPENSION, ORAL TAKE 6 ML (15 MG) IN THE MORNING AND 8 ML (20MG) IN THE EVENING
  16. HYDROCORTISONE [Concomitant]
     Active Substance: HYDROCORTISONE
     Indication: Product used for unknown indication
     Dosage: 5 MG, TABLET, ORAL 3 TABLETS AM AND 1 TABLET PM
  17. HYDROCORTISONE [Concomitant]
     Active Substance: HYDROCORTISONE
     Dosage: 20 MG IN THE MORNING AND 10 MG AT NIGHT
  18. HYDROCORTISONE [Concomitant]
     Active Substance: HYDROCORTISONE
     Dosage: 5 MILLIGRAM
  19. VITAMINS [Concomitant]
     Active Substance: VITAMINS
     Indication: Product used for unknown indication
     Dosage: TAKE 2 ORAL TABLETS ONCE A DAY
  20. PROBIOTICS NOS [Concomitant]
     Active Substance: PROBIOTICS NOS
     Indication: Product used for unknown indication
     Dosage: 15 BILLION CELL, CAPSULE, ORAL TAKE 1 ORAL CAPSULE EVERY EVENING
  21. VITAMIN B12 [Concomitant]
     Active Substance: CYANOCOBALAMIN
     Indication: Product used for unknown indication
     Dosage: 1500 MICROGRAM
  22. VITAMIN B12 [Concomitant]
     Active Substance: CYANOCOBALAMIN
     Dosage: 500 MICROGRAM
  23. FOLIC ACID [Concomitant]
     Active Substance: FOLIC ACID
     Indication: Product used for unknown indication
     Dosage: 800 MCG, TABLET, ORAL, TAKE 1 ORAL TABLET ONCE A DAY
  24. AMITRIPTYLINE [Concomitant]
     Active Substance: AMITRIPTYLINE
     Indication: Product used for unknown indication
     Dosage: 10 MG, TABLET, ORAL, TAKE 2 ORAL TABLET ONCE A DAY
  25. AMITRIPTYLINE [Concomitant]
     Active Substance: AMITRIPTYLINE
     Dosage: 20 MG AT NIGHT
  26. NORETHINDRONE ACETATE [Concomitant]
     Active Substance: NORETHINDRONE ACETATE
     Indication: Product used for unknown indication
     Dosage: 5 MG, TABLET, ORAL, TAKE 1-2 ORAL TABLET ONCE A DAY
  27. NORETHINDRONE ACETATE [Concomitant]
     Active Substance: NORETHINDRONE ACETATE
     Dosage: 5 MILLIGRAM, ONCE DAILY (QD)
  28. LEVOTHYROXINE [Concomitant]
     Active Substance: LEVOTHYROXINE
     Indication: Product used for unknown indication
     Dosage: 125 MCG, TABLET, ORAL, TAKE 1 ORAL TABLET ONCE A DAY
  29. VITAMIN D3 [Concomitant]
     Active Substance: CHOLECALCIFEROL
     Indication: Product used for unknown indication
     Dosage: 125 MCG (5,000 UNIT), TABLET, ORAL, TAKE 1 ORAL TABLET AT BEDTIME
  30. VITAMIN D3 [Concomitant]
     Active Substance: CHOLECALCIFEROL
     Dosage: 500 IU PILL AT NIGHT
  31. ESTRADIOL [Concomitant]
     Active Substance: ESTRADIOL
     Indication: Product used for unknown indication
     Dosage: 0.1 MG/24 HR, PATCH SEMIWEEKLY, TRANSDERMAL, TAKE 2 TRANSDERMAL TRANSDERMAL PATCHES  TIMES A WEEK
  32. NEXPLANON [Concomitant]
     Active Substance: ETONOGESTREL
     Indication: Product used for unknown indication
     Dosage: 68 MG, IMPLANT, SUBDERMAL TAKE 1 SUBDERMAL IMPLANT ONCE A DAY IN LEFT ARM
  33. GENOTROPIN [Concomitant]
     Active Substance: SOMATROPIN
     Indication: Product used for unknown indication
     Dosage: 0.2 MG INJECTION SUBCUTANEOUSLY AT NIGHT

REACTIONS (35)
  - Seizure [Not Recovered/Not Resolved]
  - Drop attacks [Not Recovered/Not Resolved]
  - Partial seizures [Unknown]
  - Atonic seizures [Not Recovered/Not Resolved]
  - Hypotension [Not Recovered/Not Resolved]
  - Fall [Not Recovered/Not Resolved]
  - Injury [Not Recovered/Not Resolved]
  - Syncope [Not Recovered/Not Resolved]
  - Loss of consciousness [Not Recovered/Not Resolved]
  - Generalised tonic-clonic seizure [Unknown]
  - Hallucination [Unknown]
  - Circulatory collapse [Unknown]
  - Narcolepsy [Unknown]
  - Tooth abscess [Unknown]
  - Dizziness postural [Not Recovered/Not Resolved]
  - Electrocardiogram ambulatory [Not Recovered/Not Resolved]
  - Dizziness [Not Recovered/Not Resolved]
  - Tooth avulsion [Not Recovered/Not Resolved]
  - Skin laceration [Not Recovered/Not Resolved]
  - Infection [Unknown]
  - Foot fracture [Unknown]
  - Face injury [Unknown]
  - Eye contusion [Unknown]
  - Contusion [Unknown]
  - Memory impairment [Unknown]
  - Communication disorder [Unknown]
  - Irritability [Unknown]
  - Depression [Unknown]
  - Anxiety disorder [Unknown]
  - Fatigue [Unknown]
  - Galactorrhoea [Unknown]
  - Somnolence [Unknown]
  - Vitamin D deficiency [Unknown]
  - Overdose [Unknown]
  - Drug ineffective [Unknown]
